FAERS Safety Report 10759080 (Version 3)
Quarter: 2015Q1

REPORT INFORMATION
  Report Type: Spontaneous
  Country: JP (occurrence: JP)
  Receive Date: 20150203
  Receipt Date: 20150210
  Transmission Date: 20150721
  Serious: Yes (Hospitalization, Other)
  Sender: FDA-Public Use
  Company Number: JP-JNJFOC-20111204979

PATIENT
  Age: 26 Year
  Sex: Female

DRUGS (11)
  1. IMURAN [Suspect]
     Active Substance: AZATHIOPRINE
     Indication: CROHN^S DISEASE
     Route: 048
     Dates: end: 20140914
  2. ELENTAL-P [Suspect]
     Active Substance: AMINO ACIDS\CARBOHYDRATES\MINERALS\SOYBEAN OIL\VITAMINS
     Indication: CROHN^S DISEASE
     Route: 048
     Dates: start: 20090901, end: 20140914
  3. REMICADE [Suspect]
     Active Substance: INFLIXIMAB
     Indication: CROHN^S DISEASE
     Route: 042
     Dates: start: 20091109
  4. SLAMA [Suspect]
     Active Substance: SULFASALAZINE
     Indication: CROHN^S DISEASE
     Route: 048
     Dates: start: 20090901, end: 20140914
  5. IMURAN [Suspect]
     Active Substance: AZATHIOPRINE
     Indication: CROHN^S DISEASE
     Route: 048
     Dates: start: 20091222, end: 20110524
  6. IMURAN [Suspect]
     Active Substance: AZATHIOPRINE
     Indication: CROHN^S DISEASE
     Route: 048
     Dates: start: 2002, end: 2006
  7. REMICADE [Suspect]
     Active Substance: INFLIXIMAB
     Indication: CROHN^S DISEASE
     Dosage: 13TH DOSE
     Route: 042
     Dates: start: 20111227
  8. BIO-THREE [Suspect]
     Active Substance: HERBALS
     Indication: CROHN^S DISEASE
     Route: 048
     Dates: start: 20090901, end: 20140914
  9. REMICADE [Suspect]
     Active Substance: INFLIXIMAB
     Indication: CROHN^S DISEASE
     Route: 042
     Dates: end: 20110524
  10. REMICADE [Suspect]
     Active Substance: INFLIXIMAB
     Indication: CROHN^S DISEASE
     Dosage: 12TH DOSE
     Route: 042
     Dates: start: 20110712, end: 20110712
  11. HUMIRA [Suspect]
     Active Substance: ADALIMUMAB
     Indication: CROHN^S DISEASE
     Route: 058
     Dates: start: 20120221, end: 20140909

REACTIONS (5)
  - Infusion related reaction [Recovered/Resolved]
  - Diffuse large B-cell lymphoma [Recovering/Resolving]
  - Brain oedema [None]
  - Central nervous system lymphoma [Recovering/Resolving]
  - Exposure during pregnancy [Recovered/Resolved]

NARRATIVE: CASE EVENT DATE: 20110712
